FAERS Safety Report 12716651 (Version 1)
Quarter: 2016Q3

REPORT INFORMATION
  Report Type: Spontaneous
  Country: US (occurrence: US)
  Receive Date: 20160906
  Receipt Date: 20160906
  Transmission Date: 20161109
  Serious: No
  Sender: FDA-Public Use
  Company Number: None

PATIENT
  Age: 3 Year
  Sex: Male
  Weight: 20 kg

DRUGS (1)
  1. MONTELUKAST [Suspect]
     Active Substance: MONTELUKAST SODIUM
     Indication: MULTIPLE ALLERGIES
     Route: 048
     Dates: start: 20150901, end: 20160430

REACTIONS (4)
  - Abnormal behaviour [None]
  - Frustration tolerance decreased [None]
  - Anger [None]
  - Irritability [None]

NARRATIVE: CASE EVENT DATE: 20160901
